FAERS Safety Report 9444397 (Version 1)
Quarter: 2013Q3

REPORT INFORMATION
  Report Type: Report from Study
  Country: DE (occurrence: DE)
  Receive Date: 20130807
  Receipt Date: 20130807
  Transmission Date: 20140515
  Serious: Yes (Life-Threatening, Hospitalization, Disabling)
  Sender: FDA-Public Use
  Company Number: DE-JNJFOC-20130717507

PATIENT
  Age: 52 Year
  Sex: Male

DRUGS (8)
  1. REMICADE [Suspect]
     Indication: RHEUMATOID ARTHRITIS
     Route: 042
     Dates: start: 201206, end: 20130107
  2. LANTAREL [Suspect]
     Indication: RHEUMATOID ARTHRITIS
     Route: 051
     Dates: start: 201202, end: 201206
  3. LANTAREL [Suspect]
     Indication: RHEUMATOID ARTHRITIS
     Route: 051
     Dates: start: 201103, end: 201111
  4. LANTAREL [Concomitant]
     Indication: RHEUMATOID ARTHRITIS
     Route: 048
     Dates: start: 201206, end: 20130107
  5. LANTAREL [Concomitant]
     Indication: RHEUMATOID ARTHRITIS
     Route: 048
     Dates: start: 201111, end: 201202
  6. PREDNISOLONE [Concomitant]
     Route: 065
     Dates: start: 200812
  7. VIGANTOLETTEN [Concomitant]
     Route: 065
     Dates: start: 200812
  8. CALCIUM [Concomitant]
     Route: 065
     Dates: start: 200812

REACTIONS (1)
  - Oesophageal adenocarcinoma [Not Recovered/Not Resolved]
